FAERS Safety Report 11845151 (Version 2)
Quarter: 2015Q4

REPORT INFORMATION
  Report Type: Report from Study
  Country: FR (occurrence: FR)
  Receive Date: 20151217
  Receipt Date: 20151230
  Transmission Date: 20160305
  Serious: Yes (Hospitalization, Other)
  Sender: FDA-Public Use
  Company Number: FR-BAXTER-2015BAX067069

PATIENT
  Age: 69 Year
  Sex: Male

DRUGS (41)
  1. ENDOXAN 1000 MG, POUDRE POUR SOLUTION INJECTABLE [Suspect]
     Active Substance: CYCLOPHOSPHAMIDE
     Dosage: 1200 UNITS NOT REPORTED
     Route: 065
     Dates: start: 20141117, end: 20141126
  2. PREDNISONE. [Suspect]
     Active Substance: PREDNISONE
     Dosage: 100 UNITS NOT REPORTED
     Route: 065
     Dates: start: 20141121, end: 20141126
  3. APROVEL [Concomitant]
     Active Substance: IRBESARTAN
     Route: 065
     Dates: start: 20141204
  4. PRIMPERAN [Concomitant]
     Active Substance: METOCLOPRAMIDE HYDROCHLORIDE
     Indication: VOMITING
     Route: 065
     Dates: start: 20141027, end: 20141027
  5. GRANOCYTE [Concomitant]
     Active Substance: LENOGRASTIM
     Indication: PROPHYLAXIS
     Route: 065
     Dates: start: 20141101, end: 20141106
  6. TRAMADOL. [Concomitant]
     Active Substance: TRAMADOL
     Indication: PAIN IN JAW
     Route: 065
     Dates: start: 20141011
  7. AMLOR [Concomitant]
     Active Substance: AMLODIPINE BESYLATE
     Indication: HYPERTENSION
     Route: 065
     Dates: start: 20141126, end: 20141204
  8. POLARAMINE [Concomitant]
     Active Substance: DEXCHLORPHENIRAMINE MALEATE
     Indication: PREMEDICATION
     Route: 065
     Dates: start: 20141027, end: 20141110
  9. DOXORUBICIN [Suspect]
     Active Substance: DOXORUBICIN
     Indication: NON-HODGKIN^S LYMPHOMA
     Dosage: 80 UNITS NOT REPORTED
     Route: 065
     Dates: start: 20141027
  10. SODIUM BICARBONATE. [Concomitant]
     Active Substance: SODIUM BICARBONATE
     Indication: INFECTION PROPHYLAXIS
     Route: 065
     Dates: start: 20141028
  11. FORLAX [Concomitant]
     Active Substance: POLYETHYLENE GLYCOL 4000
     Indication: CONSTIPATION
     Route: 065
     Dates: start: 20141103
  12. PARACETAMOL [Concomitant]
     Active Substance: ACETAMINOPHEN
     Indication: PREMEDICATION
     Route: 065
     Dates: start: 20141027, end: 20141110
  13. EUPANTOL [Concomitant]
     Active Substance: PANTOPRAZOLE SODIUM
     Indication: PRODUCT USED FOR UNKNOWN INDICATION
     Route: 065
     Dates: start: 20141201
  14. LASILIX [Concomitant]
     Active Substance: FUROSEMIDE
     Indication: PRODUCT USED FOR UNKNOWN INDICATION
     Route: 065
  15. VINCRISTINE [Suspect]
     Active Substance: VINCRISTINE
     Indication: NON-HODGKIN^S LYMPHOMA
     Dosage: 2 UNITS NOT REPORTED
     Route: 065
     Dates: start: 20141027
  16. SPIRIVA [Concomitant]
     Active Substance: TIOTROPIUM BROMIDE MONOHYDRATE
     Indication: CHRONIC OBSTRUCTIVE PULMONARY DISEASE
     Route: 065
     Dates: start: 2012
  17. LOVENOX [Concomitant]
     Active Substance: ENOXAPARIN SODIUM
     Indication: THROMBOSIS PROPHYLAXIS
     Route: 065
     Dates: start: 20141027, end: 20141027
  18. VENOFER [Concomitant]
     Active Substance: IRON SUCROSE
     Indication: PRODUCT USED FOR UNKNOWN INDICATION
     Route: 065
  19. ENDOXAN 1000 MG, POUDRE POUR SOLUTION INJECTABLE [Suspect]
     Active Substance: CYCLOPHOSPHAMIDE
     Indication: NON-HODGKIN^S LYMPHOMA
     Dosage: 1200 UNITS NOT REPORTED
     Route: 065
     Dates: start: 20141027
  20. GDC-0199 [Suspect]
     Active Substance: VENETOCLAX
     Indication: NON-HODGKIN^S LYMPHOMA
     Dosage: 200 UNITS NOT REPORTED
     Route: 048
     Dates: start: 20141030
  21. OBINUTUZUMAB [Suspect]
     Active Substance: OBINUTUZUMAB
     Dosage: 1000 UNITS NOT REPORTED
     Route: 065
     Dates: start: 20141117, end: 20141126
  22. VINCRISTINE [Suspect]
     Active Substance: VINCRISTINE
     Dosage: 2 UNITS NOT REPORTED
     Route: 065
     Dates: start: 20141117, end: 20141126
  23. XANAX [Concomitant]
     Active Substance: ALPRAZOLAM
     Indication: DEPRESSION
     Route: 065
  24. NORADRENALIN [Concomitant]
     Active Substance: NOREPINEPHRINE\NOREPINEPHRINE BITARTRATE
     Indication: URINE OUTPUT DECREASED
     Route: 065
     Dates: start: 20141126, end: 20141129
  25. ATARAX [Concomitant]
     Active Substance: HYDROXYZINE\HYDROXYZINE HYDROCHLORIDE
     Indication: DEPRESSION
     Route: 065
     Dates: start: 20141130, end: 20141202
  26. PLITICAN [Concomitant]
     Active Substance: ALIZAPRIDE HYDROCHLORIDE
     Indication: NAUSEA
     Route: 065
     Dates: start: 20141126, end: 20141126
  27. CRESTOR [Concomitant]
     Active Substance: ROSUVASTATIN CALCIUM
     Indication: ATRIAL FIBRILLATION
     Route: 065
     Dates: start: 20141201
  28. DOXORUBICIN [Suspect]
     Active Substance: DOXORUBICIN
     Dosage: 80 UNITS NOT REPORTED
     Route: 065
     Dates: start: 20141117, end: 20141126
  29. APROVEL [Concomitant]
     Active Substance: IRBESARTAN
     Indication: HYPERTENSION
     Route: 065
     Dates: start: 2009, end: 20141126
  30. KARDEGIC [Concomitant]
     Active Substance: ASPIRIN LYSINE
     Indication: PERIPHERAL ARTERIAL OCCLUSIVE DISEASE
     Route: 065
     Dates: start: 2009
  31. TEMESTA [Concomitant]
     Active Substance: LORAZEPAM
     Indication: DEPRESSION
     Route: 065
     Dates: start: 20141027
  32. NEORECORMON [Concomitant]
     Active Substance: ERYTHROPOIETIN
     Indication: ANAEMIA
     Route: 065
     Dates: start: 20141117
  33. GDC-0199 [Suspect]
     Active Substance: VENETOCLAX
     Dosage: 200 UNITS NOT REPORTED
     Route: 048
     Dates: start: 20141125, end: 20141126
  34. OBINUTUZUMAB [Suspect]
     Active Substance: OBINUTUZUMAB
     Indication: NON-HODGKIN^S LYMPHOMA
     Dosage: 1000 UNITS NOT REPORTED
     Route: 065
     Dates: start: 20141027
  35. PREDNISONE. [Suspect]
     Active Substance: PREDNISONE
     Indication: NON-HODGKIN^S LYMPHOMA
     Dosage: 100 UNITS NOT REPORTED
     Route: 065
     Dates: start: 20141027
  36. ALLOPURINOL. [Concomitant]
     Active Substance: ALLOPURINOL
     Indication: PROPHYLAXIS
     Route: 065
     Dates: start: 20141027, end: 20141102
  37. HEXTRIL [Concomitant]
     Indication: INFECTION PROPHYLAXIS
     Route: 065
     Dates: start: 20141028
  38. HEXTRIL [Concomitant]
     Route: 065
     Dates: start: 20141103
  39. GRANOCYTE [Concomitant]
     Active Substance: LENOGRASTIM
     Route: 065
     Dates: start: 20141122, end: 20141129
  40. RED BLOOD CELLS [Concomitant]
     Active Substance: HUMAN RED BLOOD CELL
     Indication: ANAEMIA
     Route: 065
     Dates: start: 20141126, end: 20141126
  41. LOVENOX [Concomitant]
     Active Substance: ENOXAPARIN SODIUM
     Indication: ATRIAL FIBRILLATION
     Route: 065
     Dates: start: 20141201

REACTIONS (3)
  - Febrile neutropenia [Recovered/Resolved]
  - Acute coronary syndrome [Recovered/Resolved]
  - Infection [Recovered/Resolved]

NARRATIVE: CASE EVENT DATE: 20141126
